FAERS Safety Report 9713481 (Version 1)
Quarter: 2013Q4

REPORT INFORMATION
  Report Type: Spontaneous
  Country: US (occurrence: US)
  Receive Date: 20131126
  Receipt Date: 20131126
  Transmission Date: 20140711
  Serious: No
  Sender: FDA-Public Use
  Company Number: US-B.I. PHARMACEUTICALS,INC./RIDGEFIELD-2013-BI-37585BP

PATIENT
  Sex: Female
  Weight: 46 kg

DRUGS (12)
  1. SPIRIVA [Suspect]
     Indication: EMPHYSEMA
     Dosage: 18 MCG
     Route: 055
     Dates: start: 2007
  2. DALIRESP [Concomitant]
     Indication: EMPHYSEMA
     Dosage: 500 MCG
     Route: 048
  3. FISH OIL [Concomitant]
     Dosage: 1000 MG
     Route: 048
  4. ALBUTEROL NEBULIZER [Concomitant]
     Indication: EMPHYSEMA
     Route: 055
  5. PREDNISONE [Concomitant]
     Indication: EMPHYSEMA
     Dosage: 5 MG
     Route: 048
  6. LISINOPRIL [Concomitant]
     Indication: HYPERTENSION
     Dosage: 5 MG
     Route: 048
  7. ALPRAZOLAM [Concomitant]
     Indication: ANXIETY
     Dosage: 0.25 MG
     Route: 048
  8. CALCIUM + D3 [Concomitant]
     Route: 048
  9. PROAIR [Concomitant]
     Indication: EMPHYSEMA
     Route: 055
  10. LEVOTHYROXINE [Concomitant]
     Indication: HYPOTHYROIDISM
     Dosage: 88 MCG
     Route: 048
  11. QVAR [Concomitant]
     Indication: EMPHYSEMA
     Route: 055
  12. FORADIL [Concomitant]
     Indication: EMPHYSEMA
     Route: 055

REACTIONS (2)
  - Dyspnoea [Not Recovered/Not Resolved]
  - Abnormal loss of weight [Not Recovered/Not Resolved]
